FAERS Safety Report 6839615-X (Version None)
Quarter: 2010Q3

REPORT INFORMATION
  Report Type: 
  Country: None (occurrence: None)
  Receive Date: 20100714
  Receipt Date: 20100702
  Transmission Date: 20110219
  Serious: Yes (Hospitalization)
  Sender: FDA-Public Use
  Company Number: IT-ELI_LILLY_AND_COMPANY-IT201007000683

PATIENT
  Sex: Female

DRUGS (7)
  1. HUMAN INSULIN (RDNA ORIGIN) [Suspect]
     Dosage: 36 IU, DAILY (1/D)
     Route: 058
     Dates: start: 20090515, end: 20100514
  2. HUMULIN N [Suspect]
     Dosage: 15 IU, DAILY (1/D)
     Route: 058
     Dates: start: 20090515, end: 20100514
  3. LANOXIN [Concomitant]
     Dosage: 125 UG, UNK
     Route: 048
     Dates: start: 20090515, end: 20100514
  4. LASIX [Concomitant]
     Route: 048
     Dates: start: 20090515, end: 20100514
  5. COUMADIN [Concomitant]
     Dosage: 5 MG, UNK
     Route: 048
     Dates: start: 20090515, end: 20100514
  6. COVERSYL [Concomitant]
     Dates: start: 20090515, end: 20100514
  7. TALOFEN [Concomitant]
     Dates: start: 20090515, end: 20100514

REACTIONS (1)
  - HYPOGLYCAEMIA [None]
